FAERS Safety Report 12342914 (Version 2)
Quarter: 2016Q2

REPORT INFORMATION
  Report Type: Spontaneous
  Country: US (occurrence: US)
  Receive Date: 20160506
  Receipt Date: 20160609
  Transmission Date: 20160815
  Serious: No
  Sender: FDA-Public Use
  Company Number: US-CELGENEUS-USA-2016046799

PATIENT
  Sex: Male

DRUGS (1)
  1. THALOMID [Suspect]
     Active Substance: THALIDOMIDE
     Indication: MYELOPROLIFERATIVE NEOPLASM
     Dosage: 50 MILLIGRAM
     Route: 048
     Dates: start: 201509

REACTIONS (3)
  - Peripheral swelling [Unknown]
  - Dysgeusia [Unknown]
  - Hypoacusis [Unknown]
